FAERS Safety Report 5731723-X (Version None)
Quarter: 2008Q2

REPORT INFORMATION
  Report Type: 
  Country: None (occurrence: None)
  Receive Date: 20080506
  Receipt Date: 20080422
  Transmission Date: 20081010
  Serious: Yes (Hospitalization)
  Sender: FDA-Public Use
  Company Number: 2008BI009307

PATIENT
  Age: 37 Year
  Sex: Female

DRUGS (1)
  1. AVONEX [Suspect]
     Indication: MULTIPLE SCLEROSIS
     Dosage: M
     Route: 030
     Dates: start: 19970101

REACTIONS (13)
  - ATRIAL FIBRILLATION [None]
  - BLINDNESS UNILATERAL [None]
  - BURNING SENSATION [None]
  - CLUMSINESS [None]
  - DRUG EFFECT DECREASED [None]
  - EYE SWELLING [None]
  - FEELING HOT [None]
  - HYPOAESTHESIA [None]
  - INFLUENZA LIKE ILLNESS [None]
  - INJURY [None]
  - MIGRAINE [None]
  - MULTIPLE SCLEROSIS RELAPSE [None]
  - WRONG TECHNIQUE IN DRUG USAGE PROCESS [None]
